FAERS Safety Report 17328776 (Version 2)
Quarter: 2020Q4

REPORT INFORMATION
  Report Type: Report from Study
  Country: US (occurrence: US)
  Receive Date: 20200127
  Receipt Date: 20201107
  Transmission Date: 20210113
  Serious: Yes (Hospitalization, Other)
  Sender: FDA-Public Use
  Company Number: NVSC2020US015934

PATIENT
  Sex: Male

DRUGS (2)
  1. PROMACTA [Suspect]
     Active Substance: ELTROMBOPAG OLAMINE
     Dosage: 25 MG, QD (STRENGTH 25 MG)
     Route: 048
  2. PROMACTA [Suspect]
     Active Substance: ELTROMBOPAG OLAMINE
     Indication: THROMBOCYTOPENIA
     Dosage: 1 DF, QD (STRENGTH 12.5 MG)
     Route: 048

REACTIONS (4)
  - Haematochezia [Recovering/Resolving]
  - Platelet count decreased [Not Recovered/Not Resolved]
  - Blood urine present [Recovering/Resolving]
  - Dizziness [Not Recovered/Not Resolved]
